FAERS Safety Report 6373915-5 (Version None)
Quarter: 2009Q3

REPORT INFORMATION
  Report Type: 
  Country: None (occurrence: None)
  Receive Date: 20090921
  Receipt Date: 20090811
  Transmission Date: 20100115
  Serious: Yes (Other)
  Sender: FDA-Public Use
  Company Number: 2009BH012676

PATIENT
  Age: 63 Year
  Sex: Male

DRUGS (3)
  1. MIDAZOLAM HYDROCHLORIDE [Suspect]
     Indication: SEDATION
     Dosage: 50 ML; TOTAL; IV
     Route: 042
     Dates: start: 20090808, end: 20090808
  2. MIDAZOLAM HYDROCHLORIDE [Suspect]
     Indication: SEDATION
     Dosage: 50 ML; TOTAL; IV
     Route: 042
     Dates: start: 20090801
  3. PROPOFOL [Suspect]
     Indication: SEDATION
     Dosage: IV
     Route: 042

REACTIONS (4)
  - DEVICE MALFUNCTION [None]
  - DRUG INEFFECTIVE [None]
  - INCORRECT DRUG ADMINISTRATION RATE [None]
  - SEDATION [None]
